FAERS Safety Report 23668619 (Version 1)
Quarter: 2024Q1

REPORT INFORMATION
  Report Type: Spontaneous
  Country: US (occurrence: None)
  Receive Date: 20240323
  Receipt Date: 20240323
  Transmission Date: 20240409
  Serious: Yes (Death)
  Sender: FDA-Public Use
  Company Number: None

PATIENT
  Age: 73 Year
  Sex: Male
  Weight: 99.6 kg

DRUGS (1)
  1. YESCARTA [Suspect]
     Active Substance: AXICABTAGENE CILOLEUCEL
     Indication: Follicular lymphoma refractory
     Dosage: FREQUENCY : ONCE;?
     Route: 040
     Dates: start: 20240313

REACTIONS (9)
  - Drug eruption [None]
  - Cytokine release syndrome [None]
  - Atrial fibrillation [None]
  - Hypotension [None]
  - Cardiac failure [None]
  - Ejection fraction decreased [None]
  - Immune effector cell-associated neurotoxicity syndrome [None]
  - Cardiac arrest [None]
  - Therapy non-responder [None]

NARRATIVE: CASE EVENT DATE: 20240320
